FAERS Safety Report 5691357-2 (Version None)
Quarter: 2008Q1

REPORT INFORMATION
  Report Type: 
  Country: None (occurrence: None)
  Receive Date: 20080331
  Receipt Date: 20080325
  Transmission Date: 20080703
  Serious: Yes (Life-Threatening, Hospitalization)
  Sender: FDA-Public Use
  Company Number: 237972K07USA

PATIENT
  Age: 60 Year
  Sex: Female

DRUGS (11)
  1. REBIF [Suspect]
     Indication: MULTIPLE SCLEROSIS
     Dosage: 44 MCG, 3 IN 1 WEEKS, SUBCUTANEOUS
     Route: 058
     Dates: start: 20030301, end: 20070617
  2. NEURONTIN [Concomitant]
  3. TYLENOL NO. 4 (PANADEINE CO) [Concomitant]
  4. TIZANIDINE HCL [Concomitant]
  5. REGLAN (METOCLOPRAMIDE /00041901/) [Concomitant]
  6. ETODOLAC [Concomitant]
  7. KEPPRA [Concomitant]
  8. LAMICTAL [Concomitant]
  9. DIAZEPAM [Concomitant]
  10. LASIX (FUROSEMIDE /00032601/) [Concomitant]
  11. FOSAMAX [Concomitant]

REACTIONS (8)
  - AEROMONA INFECTION [None]
  - ANAEMIA [None]
  - ASTHENIA [None]
  - COMA [None]
  - DIARRHOEA [None]
  - PNEUMONIA [None]
  - RESPIRATORY FAILURE [None]
  - SEPSIS [None]
